FAERS Safety Report 8585742-9 (Version None)
Quarter: 2012Q3

REPORT INFORMATION
  Report Type: 
  Country: None (occurrence: None)
  Receive Date: 20120810
  Receipt Date: 20120801
  Transmission Date: 20120928
  Serious: Yes (Other)
  Sender: FDA-Public Use
  Company Number: CN-ASTRAZENECA-2012SE54539

PATIENT
  Age: 68 Year
  Sex: Female

DRUGS (2)
  1. METOPROLOL SUCCINATE [Suspect]
     Indication: EXTRASYSTOLES
     Route: 048
     Dates: start: 20120301
  2. METOPROLOL SUCCINATE [Suspect]
     Route: 048
     Dates: start: 20120401

REACTIONS (1)
  - HEART RATE DECREASED [None]
